FAERS Safety Report 16290740 (Version 1)
Quarter: 2019Q2

REPORT INFORMATION
  Report Type: Spontaneous
  Country: US (occurrence: US)
  Receive Date: 20190509
  Receipt Date: 20190509
  Transmission Date: 20190711
  Serious: Yes (Hospitalization, Other)
  Sender: FDA-Public Use
  Company Number: US-MYLANLABS-2019M1043781

PATIENT
  Age: 93 Year
  Sex: Male

DRUGS (2)
  1. AMLODIPINE [Concomitant]
     Active Substance: AMLODIPINE BESYLATE
     Indication: HYPERTENSION
     Route: 065
  2. PROPRANOLOL [Suspect]
     Active Substance: PROPRANOLOL HYDROCHLORIDE
     Indication: ESSENTIAL TREMOR
     Dosage: LOW DOSE
     Route: 065

REACTIONS (7)
  - Acute kidney injury [Recovering/Resolving]
  - Delirium [Recovered/Resolved]
  - Hypotension [Recovering/Resolving]
  - Fall [Recovered/Resolved]
  - Sinus bradycardia [Recovering/Resolving]
  - Hallucination, visual [Recovered/Resolved]
  - Muscular weakness [Recovered/Resolved]
